FAERS Safety Report 23843466 (Version 1)
Quarter: 2024Q2

REPORT INFORMATION
  Report Type: Spontaneous
  Country: US (occurrence: None)
  Receive Date: 20240510
  Receipt Date: 20240510
  Transmission Date: 20240716
  Serious: Yes (Disabling)
  Sender: FDA-Public Use
  Company Number: None

PATIENT
  Age: 29 Year
  Sex: Male
  Weight: 78.3 kg

DRUGS (7)
  1. AJOVY [Suspect]
     Active Substance: FREMANEZUMAB-VFRM
     Indication: Migraine
     Dosage: OTHER QUANTITY : 1 INJECTION(S);?FREQUENCY : MONTHLY;?
     Route: 058
     Dates: start: 20240321, end: 20240421
  2. INFLIXIMAB [Concomitant]
     Active Substance: INFLIXIMAB
  3. PANTOPRAZOLE [Concomitant]
     Active Substance: PANTOPRAZOLE
  4. ADDERALL [Concomitant]
     Active Substance: AMPHETAMINE ASPARTATE\AMPHETAMINE SULFATE\DEXTROAMPHETAMINE SACCHARATE\DEXTROAMPHETAMINE SULFATE
  5. multi vitamin with omega 3 [Concomitant]
  6. RIBOFLAVIN [Concomitant]
     Active Substance: RIBOFLAVIN
  7. MAGNESIUM [Concomitant]
     Active Substance: MAGNESIUM

REACTIONS (3)
  - Arthralgia [None]
  - Myalgia [None]
  - Insomnia [None]

NARRATIVE: CASE EVENT DATE: 20240403
